FAERS Safety Report 9915260 (Version 1)
Quarter: 2014Q1

REPORT INFORMATION
  Report Type: Report from Study
  Country: US (occurrence: US)
  Receive Date: 20140221
  Receipt Date: 20140221
  Transmission Date: 20141002
  Serious: Yes (Other)
  Sender: FDA-Public Use
  Company Number: US-ROCHE-1329810

PATIENT
  Age: 57 Year
  Sex: Male

DRUGS (12)
  1. LUCENTIS [Suspect]
     Indication: MACULAR DEGENERATION
     Route: 050
  2. LUCENTIS [Suspect]
     Indication: PRESUMED OCULAR HISTOPLASMOSIS SYNDROME
  3. LUCENTIS [Suspect]
     Indication: CHOROIDAL NEOVASCULARISATION
  4. AVASTIN [Suspect]
     Indication: PRODUCT USED FOR UNKNOWN INDICATION
     Route: 065
  5. KENALOG (UNITED STATES) [Concomitant]
     Route: 065
  6. ACYCLOVIR [Concomitant]
     Route: 048
  7. SYSTANE [Concomitant]
     Dosage: PRN
     Route: 065
  8. SYSTANE [Concomitant]
     Dosage: OU
     Route: 065
  9. SYSTANE [Concomitant]
     Dosage: OU 5X DAY
     Route: 065
  10. LIPITOR [Concomitant]
  11. BABY ASPIRIN [Concomitant]
  12. TOBRAMYCIN [Concomitant]

REACTIONS (12)
  - Myocardial infarction [Unknown]
  - Ophthalmic herpes simplex [Unknown]
  - Retinal oedema [Unknown]
  - Metamorphopsia [Unknown]
  - Vision blurred [Unknown]
  - Retinal depigmentation [Unknown]
  - Pupillary reflex impaired [Unknown]
  - Dry eye [Unknown]
  - Macular fibrosis [Unknown]
  - Subretinal fluid [Unknown]
  - Visual acuity reduced [Unknown]
  - Off label use [Unknown]
